FAERS Safety Report 11236747 (Version 1)
Quarter: 2015Q3

REPORT INFORMATION
  Report Type: Spontaneous
  Country: CH (occurrence: CH)
  Receive Date: 20150703
  Receipt Date: 20150703
  Transmission Date: 20151125
  Serious: Yes (Other)
  Sender: FDA-Public Use
  Company Number: CH-ROCHE-1602117

PATIENT
  Age: 32 Year
  Sex: Female

DRUGS (6)
  1. ZOFRAN [Concomitant]
     Active Substance: ONDANSETRON HYDROCHLORIDE
     Route: 048
  2. AMOXICILLIN. [Concomitant]
     Active Substance: AMOXICILLIN
     Route: 065
     Dates: start: 20150226, end: 20150227
  3. CIPRALEX [Concomitant]
     Active Substance: ESCITALOPRAM OXALATE
     Route: 048
  4. ZINACEF [Suspect]
     Active Substance: CEFUROXIME SODIUM
     Indication: BACTERIAL INFECTION
     Dosage: MOST RECENT DOSE WAS TAKEN ON 03/MAR/2015
     Route: 041
     Dates: start: 20150227
  5. PERFALGAN [Concomitant]
     Active Substance: ACETAMINOPHEN
     Route: 041
     Dates: start: 20150227, end: 20150301
  6. MABTHERA [Suspect]
     Active Substance: RITUXIMAB
     Indication: MULTIPLE SCLEROSIS
     Dosage: MOST RECENT DOSE WAS TAKEN ON 17/FEB/2015
     Route: 041
     Dates: start: 20140730

REACTIONS (2)
  - Agranulocytosis [Recovered/Resolved]
  - Lymphopenia [Recovered/Resolved]

NARRATIVE: CASE EVENT DATE: 20150304
